FAERS Safety Report 4770794-4 (Version None)
Quarter: 2005Q3

REPORT INFORMATION
  Report Type: 
  Country: None (occurrence: None)
  Receive Date: 20050914
  Receipt Date: 20050914
  Transmission Date: 20060218
  Serious: Yes (Death)
  Sender: FDA-Public Use
  Company Number: 12223

PATIENT
  Age: 83 Year
  Sex: Female

DRUGS (4)
  1. METHOTREXATE [Suspect]
     Indication: RHEUMATOID ARTHRITIS
     Dosage: 10  MG WEEKLY PO
     Route: 048
  2. FOLIC ACID [Concomitant]
  3. FUROSEMIDE [Concomitant]
  4. ALENDRONATE SODIUM [Concomitant]

REACTIONS (3)
  - ACUTE MYELOID LEUKAEMIA [None]
  - ANGINA PECTORIS [None]
  - PANCYTOPENIA [None]
